FAERS Safety Report 8550421-0 (Version None)
Quarter: 2012Q3

REPORT INFORMATION
  Report Type: 
  Country: None (occurrence: None)
  Receive Date: 20120730
  Receipt Date: 20120719
  Transmission Date: 20120928
  Serious: Yes (Hospitalization, Other)
  Sender: FDA-Public Use
  Company Number: US-ASTRAZENECA-2012SE49076

PATIENT
  Age: 54 Year
  Sex: Male

DRUGS (3)
  1. NEXIUM [Suspect]
     Route: 048
  2. PRILOSEC [Suspect]
     Route: 048
  3. CRESTOR [Suspect]
     Route: 048

REACTIONS (9)
  - WEIGHT DECREASED [None]
  - SEPSIS [None]
  - DRUG DOSE OMISSION [None]
  - GASTRIC HAEMORRHAGE [None]
  - APHAGIA [None]
  - ABDOMINAL PAIN UPPER [None]
  - CEREBROVASCULAR ACCIDENT [None]
  - MALAISE [None]
  - DRUG INEFFECTIVE [None]
